FAERS Safety Report 7035552-9 (Version None)
Quarter: 2010Q4

REPORT INFORMATION
  Report Type: 
  Country: None (occurrence: None)
  Receive Date: 20101008
  Receipt Date: 20100929
  Transmission Date: 20110411
  Serious: Yes (Other)
  Sender: FDA-Public Use
  Company Number: US-ASTRAZENECA-2010SE45819

PATIENT
  Age: 39 Year
  Sex: Male

DRUGS (11)
  1. SEROQUEL [Suspect]
     Indication: INSOMNIA
     Route: 048
  2. ZOLOFT [Suspect]
     Indication: DEPRESSION
     Route: 048
  3. VISTARIL [Suspect]
     Indication: ANXIETY
     Route: 048
  4. VISTARIL [Suspect]
     Indication: DEPRESSION
     Route: 048
  5. GABAPENTIN [Suspect]
     Indication: MUSCLE RELAXANT THERAPY
     Route: 048
  6. PROPRANOLOL [Concomitant]
     Indication: HYPERTENSION
  7. PROPRANOLOL [Concomitant]
     Indication: MITRAL VALVE PROLAPSE
  8. HYDROCODONE [Concomitant]
     Indication: SURGERY
  9. HYDROCODONE [Concomitant]
     Indication: KNEE OPERATION
  10. BUPROPION [Concomitant]
     Indication: SURGERY
  11. BUPROPION [Concomitant]
     Indication: KNEE OPERATION

REACTIONS (5)
  - DIZZINESS [None]
  - HEADACHE [None]
  - MIGRAINE [None]
  - NECK PAIN [None]
  - VISION BLURRED [None]
